FAERS Safety Report 8335487-5 (Version None)
Quarter: 2012Q2

REPORT INFORMATION
  Report Type: 
  Country: None (occurrence: None)
  Receive Date: 20120503
  Receipt Date: 20120419
  Transmission Date: 20120825
  Serious: Yes (Other)
  Sender: FDA-Public Use
  Company Number: NL-BAXTER-2012BAX003457

PATIENT
  Sex: Female
  Weight: 90 kg

DRUGS (3)
  1. KIOVIG [Suspect]
     Route: 042
     Dates: start: 20110301, end: 20110301
  2. COTRIM [Concomitant]
     Indication: SINUSITIS
     Route: 048
     Dates: start: 20101123
  3. KIOVIG [Suspect]
     Indication: PRIMARY IMMUNODEFICIENCY SYNDROME
     Route: 042
     Dates: start: 20110209, end: 20110209

REACTIONS (4)
  - VOMITING [None]
  - NAUSEA [None]
  - MIGRAINE [None]
  - INJECTION SITE STREAKING [None]
